FAERS Safety Report 17013670 (Version 4)
Quarter: 2019Q4

REPORT INFORMATION
  Report Type: Spontaneous
  Country: CN (occurrence: CN)
  Receive Date: 20191110
  Receipt Date: 20191122
  Transmission Date: 20200122
  Serious: Yes (Death, Hospitalization)
  Sender: FDA-Public Use
  Company Number: CN-JNJFOC-20191100082

PATIENT
  Age: 27 Year
  Sex: Male

DRUGS (1)
  1. TYLENOL [Suspect]
     Active Substance: ACETAMINOPHEN
     Indication: NASOPHARYNGITIS
     Dosage: 1-2 TABLETS EACH TIME, ONCE EVERY 6 HOURS
     Route: 065

REACTIONS (10)
  - Hepatorenal failure [Fatal]
  - Muscle disorder [Fatal]
  - Overdose [Fatal]
  - Gastric haemorrhage [Fatal]
  - Product administration error [Fatal]
  - Respiratory failure [Fatal]
  - Soft tissue injury [Fatal]
  - Blood pressure decreased [Fatal]
  - Multiple organ dysfunction syndrome [Fatal]
  - Shock [Fatal]
